FAERS Safety Report 10075840 (Version 1)
Quarter: 2014Q2

REPORT INFORMATION
  Report Type: Spontaneous
  Country: FR (occurrence: FR)
  Receive Date: 20140414
  Receipt Date: 20140414
  Transmission Date: 20141212
  Serious: Yes (Life-Threatening, Other)
  Sender: FDA-Public Use
  Company Number: FR-ELI_LILLY_AND_COMPANY-FR201404002271

PATIENT
  Age: 13 Year
  Sex: Female

DRUGS (1)
  1. ZYPREXA [Suspect]
     Indication: SUICIDE ATTEMPT
     Dosage: 200 MG, SINGLE
     Route: 048
     Dates: start: 20140216, end: 20140216

REACTIONS (7)
  - Confusional state [Recovered/Resolved]
  - Suicide attempt [Recovered/Resolved]
  - Coma [Recovered/Resolved]
  - Tachycardia [Recovered/Resolved]
  - Speech disorder [Recovered/Resolved]
  - Agitation [Recovered/Resolved]
  - Intentional overdose [Unknown]
